FAERS Safety Report 25507086 (Version 1)
Quarter: 2025Q3

REPORT INFORMATION
  Report Type: Spontaneous
  Country: CN (occurrence: CN)
  Receive Date: 20250702
  Receipt Date: 20250702
  Transmission Date: 20251020
  Serious: Yes (Hospitalization, Other)
  Sender: ABBVIE
  Company Number: CN-ABBVIE-6349762

PATIENT
  Age: 68 Year
  Sex: Female
  Weight: 52 kg

DRUGS (2)
  1. VENCLEXTA [Suspect]
     Active Substance: VENETOCLAX
     Indication: Chemotherapy
     Route: 048
     Dates: start: 20250605, end: 20250614
  2. VENCLEXTA [Suspect]
     Active Substance: VENETOCLAX
     Indication: Chemotherapy
     Route: 048
     Dates: start: 20250604, end: 20250604

REACTIONS (1)
  - Myelosuppression [Recovering/Resolving]

NARRATIVE: CASE EVENT DATE: 20250621
